FAERS Safety Report 9645207 (Version 2)
Quarter: 2013Q4

REPORT INFORMATION
  Report Type: Spontaneous
  Country: US (occurrence: US)
  Receive Date: 20131025
  Receipt Date: 20131203
  Transmission Date: 20140711
  Serious: No
  Sender: FDA-Public Use
  Company Number: US-ASTELLAS-2013US010955

PATIENT
  Sex: Female

DRUGS (13)
  1. PROGRAF [Suspect]
     Indication: RENAL TRANSPLANT
     Dosage: 3 MG, BID
     Route: 048
     Dates: start: 199607
  2. PROGRAF [Suspect]
     Indication: PANCREAS TRANSPLANT
  3. PROGRAF [Suspect]
     Indication: RENAL FAILURE CHRONIC
  4. ASPIRIN [Concomitant]
     Indication: PRODUCT USED FOR UNKNOWN INDICATION
     Dosage: 81 MG, UID/QD
     Route: 048
  5. ATORVASTATIN                       /01326102/ [Concomitant]
     Indication: BLOOD CHOLESTEROL INCREASED
     Dosage: 40 MG, UID/QD
     Route: 048
  6. FUROSEMIDE [Concomitant]
     Indication: SWELLING
     Dosage: 20 MG, UID/QD
     Route: 048
  7. IMDUR [Concomitant]
     Indication: HEART RATE DECREASED
     Dosage: 60 MG, UID/QD
     Route: 048
  8. METOPROLOL                         /00376902/ [Concomitant]
     Indication: HYPERTENSION
     Dosage: 50 MG, BID
     Route: 048
  9. MYCOPHENOLATE [Concomitant]
     Indication: IMMUNOSUPPRESSION
     Dosage: 250 MG, BID
     Route: 048
  10. PREDNISONE [Concomitant]
     Indication: IMMUNOSUPPRESSION
     Dosage: 5 MG, UID/QD
     Route: 048
  11. RANITIDINE                         /00550802/ [Concomitant]
     Indication: GASTROOESOPHAGEAL REFLUX DISEASE
     Dosage: 150 MG, BID
     Route: 048
  12. SERTRALINE                         /01011402/ [Concomitant]
     Indication: DEPRESSION
     Dosage: 100 MG, UID/QD
     Route: 048
  13. VALSARTAN [Concomitant]
     Indication: HYPERTENSION
     Dosage: 80 MG, UID/QD
     Route: 048

REACTIONS (1)
  - Off label use [Unknown]
